FAERS Safety Report 5160241-5 (Version None)
Quarter: 2006Q4

REPORT INFORMATION
  Report Type: 
  Country: None (occurrence: None)
  Receive Date: 20061129
  Receipt Date: 20060927
  Transmission Date: 20070319
  Serious: Yes (Other)
  Sender: FDA-Public Use
  Company Number: US-GLAXOSMITHKLINE-A0621698A

PATIENT
  Age: 51 Year
  Sex: Female

DRUGS (6)
  1. COREG [Suspect]
     Dosage: 12.5MG TWICE PER DAY
     Route: 048
     Dates: start: 20010101
  2. NEXIUM [Concomitant]
  3. DIOVAN [Concomitant]
  4. WELLBUTRIN XL [Concomitant]
  5. LASIX [Concomitant]
  6. ZANAFLEX [Concomitant]

REACTIONS (6)
  - BLOOD CREATININE INCREASED [None]
  - BLOOD PRESSURE INCREASED [None]
  - BLOOD UREA INCREASED [None]
  - HEADACHE [None]
  - HEART RATE INCREASED [None]
  - PAIN [None]
